FAERS Safety Report 21478197 (Version 3)
Quarter: 2022Q4

REPORT INFORMATION
  Report Type: Report from Study
  Country: US (occurrence: US)
  Receive Date: 20221019
  Receipt Date: 20221128
  Transmission Date: 20230112
  Serious: Yes (Other)
  Sender: FDA-Public Use
  Company Number: US-GLAXOSMITHKLINE-US2022AMR147327

PATIENT

DRUGS (2)
  1. BELANTAMAB MAFODOTIN [Suspect]
     Active Substance: BELANTAMAB MAFODOTIN
     Indication: Plasma cell myeloma refractory
     Dosage: 100 MG, Z, EVERY 21 DAYS
     Dates: start: 20220901, end: 20220922
  2. BELANTAMAB MAFODOTIN [Suspect]
     Active Substance: BELANTAMAB MAFODOTIN
     Dosage: UNK
     Dates: start: 20220828

REACTIONS (13)
  - Corneal epithelium defect [Unknown]
  - Vision blurred [Unknown]
  - Eye irritation [Unknown]
  - Photophobia [Unknown]
  - Lacrimation increased [Unknown]
  - Visual acuity reduced [Unknown]
  - Corneal epithelial microcysts [Unknown]
  - Keratopathy [Unknown]
  - Night blindness [Unknown]
  - Dry eye [Unknown]
  - Foreign body sensation in eyes [Unknown]
  - Eye disorder [Unknown]
  - Condition aggravated [Unknown]

NARRATIVE: CASE EVENT DATE: 20221011
